FAERS Safety Report 5928914-1 (Version None)
Quarter: 2008Q4

REPORT INFORMATION
  Report Type: 
  Country: None (occurrence: None)
  Receive Date: 20081024
  Receipt Date: 20081023
  Transmission Date: 20090506
  Serious: Yes (Hospitalization)
  Sender: FDA-Public Use
  Company Number: PHHO2000ES07756

PATIENT
  Sex: Female
  Weight: 63.5 kg

DRUGS (4)
  1. NEORAL [Suspect]
     Indication: LIVER TRANSPLANT
  2. SIMULECT [Suspect]
     Indication: LIVER TRANSPLANT
     Dosage: 20 MG, QD
     Route: 042
     Dates: start: 20000807, end: 20000807
  3. SIMULECT [Suspect]
     Dosage: 20 MG, QD
     Dates: start: 20000811, end: 20000811
  4. TACROLIMUS [Concomitant]
     Indication: LIVER TRANSPLANT
     Dosage: UNK, UNK

REACTIONS (2)
  - DRUG TOXICITY [None]
  - MYOPATHY [None]
